FAERS Safety Report 7305835-3 (Version None)
Quarter: 2011Q1

REPORT INFORMATION
  Report Type: 
  Country: None (occurrence: None)
  Receive Date: 20110222
  Receipt Date: 20110215
  Transmission Date: 20110831
  Serious: Yes (Other)
  Sender: FDA-Public Use
  Company Number: US-PFIZER INC-2010151690

PATIENT
  Sex: Male

DRUGS (2)
  1. NEXIUM [Concomitant]
     Dosage: 40 MG, UNK
     Dates: start: 20101015
  2. SUTENT [Suspect]
     Indication: RENAL CELL CARCINOMA
     Dosage: UNK MG, UNK
     Route: 048
     Dates: start: 20100924, end: 20101022

REACTIONS (2)
  - HAEMORRHAGE [None]
  - HAEMOPTYSIS [None]
